FAERS Safety Report 9424388 (Version 1)
Quarter: 2013Q3

REPORT INFORMATION
  Report Type: Spontaneous
  Country: US (occurrence: None)
  Receive Date: 20130725
  Receipt Date: 20130725
  Transmission Date: 20140515
  Serious: Yes (Other)
  Sender: FDA-Public Use
  Company Number: US-ZYDUS-001758

PATIENT
  Age: 65 Year
  Sex: Female

DRUGS (1)
  1. HYDROXYCHLOROQUINE [Suspect]

REACTIONS (7)
  - Retinal toxicity [None]
  - Vitreous floaters [None]
  - Visual acuity reduced [None]
  - Retinal degeneration [None]
  - Retinal depigmentation [None]
  - Retinopathy [None]
  - Visual field tests abnormal [None]
